FAERS Safety Report 8806033 (Version 1)
Quarter: 2012Q4

REPORT INFORMATION
  Report Type: Spontaneous
  Country: US (occurrence: None)
  Receive Date: 20120917
  Receipt Date: 20120917
  Transmission Date: 20130627
  Serious: Yes (Death)
  Sender: FDA-Public Use
  Company Number: DKLU1084481

PATIENT
  Age: 17 Year
  Sex: Male

DRUGS (30)
  1. SABRIL (TABLET) (SABRIL) (VIGABATRIN) (500 MG, TABLET) [Suspect]
     Indication: TUBEROUS SCLEROSIS
     Route: 048
     Dates: start: 20110727
  2. SABRIL (TABLET) (SABRIL) (VIGABATRIN) (500 MG, TABLET) [Suspect]
     Indication: INFANTILE SPASMS
     Route: 048
     Dates: start: 20110727
  3. SABRIL (TABLET) (SABRIL) (VIGABATRIN) (500 MG, TABLET) [Suspect]
     Route: 048
     Dates: start: 20110727
  4. SABRIL (TABLET) (SABRIL) (VIGABATRIN) (500 MG, TABLET) [Suspect]
     Indication: TUBEROUS SCLEROSIS
     Dosage: 500 mg milligram(s), AM, Oral
     Route: 048
     Dates: start: 20111030
  5. SABRIL (TABLET) (SABRIL) (VIGABATRIN) (500 MG, TABLET) [Suspect]
     Indication: INFANTILE SPASMS
     Dosage: 500 mg milligram(s), AM, Oral
     Route: 048
     Dates: start: 20111030
  6. SABRIL (TABLET) (SABRIL) (VIGABATRIN) (500 MG, TABLET) [Suspect]
     Dosage: 500 mg milligram(s), AM, Oral
     Route: 048
     Dates: start: 20111030
  7. SABRIL (TABLET) (SABRIL) (VIGABATRIN) (500 MG, TABLET) [Suspect]
     Indication: TUBEROUS SCLEROSIS
     Dosage: 500 mg milligram(s), Noon, Oral
     Route: 048
     Dates: start: 20111030
  8. SABRIL (TABLET) (SABRIL) (VIGABATRIN) (500 MG, TABLET) [Suspect]
     Indication: INFANTILE SPASMS
     Dosage: 500 mg milligram(s), Noon, Oral
     Route: 048
     Dates: start: 20111030
  9. SABRIL (TABLET) (SABRIL) (VIGABATRIN) (500 MG, TABLET) [Suspect]
     Dosage: 500 mg milligram(s), Noon, Oral
     Route: 048
     Dates: start: 20111030
  10. SABRIL (TABLET) (SABRIL) (VIGABATRIN) (500 MG, TABLET) [Suspect]
     Indication: TUBEROUS SCLEROSIS
     Dosage: 250 mg milligram(s), PM, Oral
     Route: 048
     Dates: start: 20111030
  11. SABRIL (TABLET) (SABRIL) (VIGABATRIN) (500 MG, TABLET) [Suspect]
     Indication: INFANTILE SPASMS
     Dosage: 250 mg milligram(s), PM, Oral
     Route: 048
     Dates: start: 20111030
  12. SABRIL (TABLET) (SABRIL) (VIGABATRIN) (500 MG, TABLET) [Suspect]
     Dosage: 250 mg milligram(s), PM, Oral
     Route: 048
     Dates: start: 20111030
  13. KLONOPIN (CLONAZEPAM) [Concomitant]
  14. CIRODEX (CIPRODAC-DM) [Concomitant]
  15. BENEIBER (DEXTRIN) [Concomitant]
  16. AFINITOR (EVEROLIMUS) [Concomitant]
  17. LAMICTAL (LAMOTRIGINE) [Concomitant]
  18. PULIMCORT (BUDESONIDE) [Concomitant]
  19. DIASTAT (DIAZEPAM) [Concomitant]
  20. NORMAL SALINE NOSE SPRAY (SODIUM CHLORIDE) [Concomitant]
  21. VITAMIN C (ASCORBIC ACID) [Concomitant]
  22. PYRIDOXINE (PYRIDOXINE) [Concomitant]
  23. CALCIUM (CALCIUM) [Concomitant]
  24. OXYCODONE (OXYCODONE) [Concomitant]
  25. MIRALAX (MACROGOL) [Concomitant]
  26. VITAMIN B 3 (NICOTINAMIDE) [Concomitant]
  27. KEPPRA (LEVETIRACETAM) [Concomitant]
  28. OXPENEX (LEVOSALBUTAMOL HYDROCHLORIDE) [Concomitant]
  29. BACTRIM (BACTRIM) [Concomitant]
  30. VALIUM (DIAZEPAM) [Concomitant]

REACTIONS (1)
  - Death [None]
